FAERS Safety Report 12681632 (Version 1)
Quarter: 2016Q3

REPORT INFORMATION
  Report Type: Report from Study
  Country: US (occurrence: US)
  Receive Date: 20160824
  Receipt Date: 20160824
  Transmission Date: 20161109
  Serious: Yes (Hospitalization, Other)
  Sender: FDA-Public Use
  Company Number: US-BRISTOL-MYERS SQUIBB COMPANY-BMS-2016-068861

PATIENT
  Age: 29 Year
  Sex: Female
  Weight: 71.65 kg

DRUGS (3)
  1. INCB24360 [Suspect]
     Active Substance: EPACADOSTAT
     Indication: GLIOBLASTOMA
     Dosage: 300 MG, BID
     Route: 048
     Dates: start: 20160525
  2. NIVOLUMAB [Suspect]
     Active Substance: NIVOLUMAB
     Indication: GLIOBLASTOMA
     Dosage: 240 MG, UNK
     Route: 042
     Dates: start: 20160525
  3. PARACETAMOL [Concomitant]
     Active Substance: ACETAMINOPHEN
     Indication: PRODUCT USED FOR UNKNOWN INDICATION
     Dosage: UNK
     Route: 065
     Dates: start: 20160812

REACTIONS (1)
  - Seizure [Recovered/Resolved]

NARRATIVE: CASE EVENT DATE: 20160811
